FAERS Safety Report 10261522 (Version 1)
Quarter: 2014Q2

REPORT INFORMATION
  Report Type: Spontaneous
  Country: US (occurrence: US)
  Receive Date: 20140626
  Receipt Date: 20140626
  Transmission Date: 20141212
  Serious: No
  Sender: FDA-Public Use
  Company Number: US-MYLANLABS-2014S1002592

PATIENT
  Age: 74 Year
  Sex: Female
  Weight: 83.92 kg

DRUGS (5)
  1. PERFOROMIST (FORMOTEROL FUMARATE) INHALATION SOLUTION [Suspect]
     Indication: CHRONIC OBSTRUCTIVE PULMONARY DISEASE
     Route: 055
     Dates: start: 201401
  2. TEGRETOL [Concomitant]
     Indication: EPILEPSY
     Route: 048
  3. DEPAKOTE [Concomitant]
     Indication: EPILEPSY
     Route: 048
  4. AMBIEN [Concomitant]
     Indication: INSOMNIA
     Route: 048
  5. OXYGEN [Concomitant]

REACTIONS (1)
  - Wheezing [Not Recovered/Not Resolved]
